FAERS Safety Report 6132003-3 (Version None)
Quarter: 2009Q1

REPORT INFORMATION
  Report Type: 
  Country: None (occurrence: None)
  Receive Date: 20090325
  Receipt Date: 20090317
  Transmission Date: 20090719
  Serious: Yes (Other)
  Sender: FDA-Public Use
  Company Number: PHEH2009US00972

PATIENT
  Sex: Female

DRUGS (16)
  1. GENTEAL (NVO) [Suspect]
     Indication: KERATOCONJUNCTIVITIS SICCA
     Dosage: 1 GTT, QID, OU
     Route: 047
     Dates: start: 20081029
  2. GENTEAL GEL (NVO) [Suspect]
  3. LEVOTHYROXINE [Concomitant]
     Dosage: UNK
     Route: 048
  4. OMEPRAZOLE [Concomitant]
     Dosage: UNK
     Route: 048
  5. MELOXICAM [Concomitant]
     Dosage: UNK
     Route: 048
  6. ADVAIR HFA [Concomitant]
     Dosage: UNK
     Route: 048
  7. ULTRAM [Concomitant]
     Dosage: UNK
     Route: 048
  8. EFFEXOR [Concomitant]
     Dosage: UNK
     Route: 048
  9. MIRTAZAPINE [Concomitant]
     Dosage: UNK
     Route: 048
  10. CLONAZEPAM [Concomitant]
     Route: 048
  11. TOPAMAX [Concomitant]
     Route: 048
  12. KEPPRA [Concomitant]
  13. MAXALT                                  /USA/ [Concomitant]
  14. IMODIUM [Concomitant]
  15. FLAGYL [Concomitant]
  16. HYOSCYAMINE [Concomitant]

REACTIONS (5)
  - DYSPHAGIA [None]
  - PHARYNGEAL OEDEMA [None]
  - PRURITUS [None]
  - RASH [None]
  - URTICARIA [None]
